FAERS Safety Report 5799300-2 (Version None)
Quarter: 2008Q3

REPORT INFORMATION
  Report Type: 
  Country: None (occurrence: None)
  Receive Date: 20080701
  Receipt Date: 20080616
  Transmission Date: 20090109
  Serious: Yes (Other)
  Sender: FDA-Public Use
  Company Number: 2008AL007107

PATIENT
  Age: 67 Year
  Sex: Female

DRUGS (1)
  1. DIGOXIN [Suspect]
     Dosage: 0.125MG DAILY PO
     Route: 048
     Dates: start: 20030101

REACTIONS (17)
  - ASTHENIA [None]
  - CARDIAC DISORDER [None]
  - CONFUSIONAL STATE [None]
  - DEHYDRATION [None]
  - DEPRESSED LEVEL OF CONSCIOUSNESS [None]
  - DIARRHOEA [None]
  - DIZZINESS [None]
  - FALL [None]
  - FATIGUE [None]
  - GENERALISED OEDEMA [None]
  - HEART RATE IRREGULAR [None]
  - HYPOTENSION [None]
  - NAUSEA [None]
  - NOCTURIA [None]
  - ORTHOPNOEA [None]
  - URINE OUTPUT DECREASED [None]
  - VISUAL IMPAIRMENT [None]
